FAERS Safety Report 5191645-2 (Version None)
Quarter: 2006Q4

REPORT INFORMATION
  Report Type: 
  Country: None (occurrence: None)
  Receive Date: 20061219
  Receipt Date: 20061207
  Transmission Date: 20070319
  Serious: Yes (Other)
  Sender: FDA-Public Use
  Company Number: 2006150954

PATIENT
  Age: 65 Year
  Sex: Male

DRUGS (3)
  1. NORVASC [Suspect]
     Dosage: 5 MG ORAL
     Route: 048
  2. MICARDIS [Suspect]
     Dosage: ORAL
     Route: 048
     Dates: start: 20050101, end: 20060101
  3. TENORMIN [Concomitant]

REACTIONS (3)
  - MUSCLE ATROPHY [None]
  - MYALGIA [None]
  - WEIGHT DECREASED [None]
